FAERS Safety Report 6611554-9 (Version None)
Quarter: 2010Q1

REPORT INFORMATION
  Report Type: 
  Country: None (occurrence: None)
  Receive Date: 20100303
  Receipt Date: 20100226
  Transmission Date: 20100710
  Serious: Yes (Life-Threatening)
  Sender: FDA-Public Use
  Company Number: PHHY2010JP06084

PATIENT
  Age: 35 Year
  Sex: Female

DRUGS (10)
  1. TEGRETOL [Suspect]
     Indication: EPILEPSY
     Dosage: 6800 MG, DAILY
     Route: 048
     Dates: start: 20100201, end: 20100201
  2. PHENOBARBITAL TAB [Suspect]
     Indication: EPILEPSY
     Dosage: 420 MG, DAILY
     Route: 048
     Dates: start: 20100201, end: 20100201
  3. MYSTAN [Suspect]
     Indication: EPILEPSY
     Dosage: UNK
     Route: 048
     Dates: start: 20100201, end: 20100201
  4. MUCOSTA [Concomitant]
     Dosage: UNK
     Route: 048
  5. CERCINE [Concomitant]
     Dosage: UNK
     Route: 048
  6. DAIO-KANZO-TO [Concomitant]
     Dosage: UNK
     Route: 048
  7. MYONAL [Concomitant]
     Dosage: UNK
     Route: 048
  8. BIOFERMIN [Concomitant]
     Route: 048
  9. BLONANSERIN [Concomitant]
     Dosage: UNK
     Route: 048
  10. RIVOTRIL [Concomitant]
     Dosage: UNK
     Route: 048

REACTIONS (1)
  - SUICIDE ATTEMPT [None]
